FAERS Safety Report 21675844 (Version 1)
Quarter: 2022Q4

REPORT INFORMATION
  Report Type: Spontaneous
  Country: CA (occurrence: CA)
  Receive Date: 20221202
  Receipt Date: 20221202
  Transmission Date: 20230112
  Serious: Yes (Other)
  Sender: FDA-Public Use
  Company Number: CA-AMGEN-CANSP2022205249

PATIENT
  Sex: Male

DRUGS (1)
  1. ADALIMUMAB [Suspect]
     Active Substance: ADALIMUMAB
     Indication: Ankylosing spondylitis
     Dosage: UNK
     Route: 065
     Dates: start: 20211124, end: 20220926

REACTIONS (13)
  - Eye haemorrhage [Unknown]
  - Arrhythmia [Recovered/Resolved]
  - Uveitis [Unknown]
  - Folliculitis [Unknown]
  - Back pain [Unknown]
  - Night sweats [Unknown]
  - Acne [Unknown]
  - Rash [Not Recovered/Not Resolved]
  - Tonsillar inflammation [Unknown]
  - Prostatitis [Unknown]
  - Lymphadenitis [Unknown]
  - Pulmonary mass [Unknown]
  - Urinary tract infection [Unknown]

NARRATIVE: CASE EVENT DATE: 20220101
